FAERS Safety Report 7270630-0 (Version None)
Quarter: 2011Q1

REPORT INFORMATION
  Report Type: 
  Country: None (occurrence: None)
  Receive Date: 20110202
  Receipt Date: 20110201
  Transmission Date: 20110831
  Serious: Yes (Hospitalization)
  Sender: FDA-Public Use
  Company Number: A0896979A

PATIENT
  Age: 71 Year
  Sex: Male

DRUGS (16)
  1. WARFARIN [Concomitant]
  2. COMBIVENT [Concomitant]
  3. RED YEAST RICE [Concomitant]
  4. VITAMIN D [Concomitant]
  5. SPIRIVA [Concomitant]
  6. FUROSEMIDE [Concomitant]
  7. XANAX [Concomitant]
  8. FISH OIL [Concomitant]
  9. ADVAIR [Suspect]
     Indication: EMPHYSEMA
     Dosage: 1PUFF TWICE PER DAY
     Route: 055
  10. OXYGEN [Concomitant]
  11. PROVENTIL [Concomitant]
  12. ALAVERT [Concomitant]
  13. DUONEB [Concomitant]
  14. VERAPAMIL [Concomitant]
  15. EXCEDRIN (MIGRAINE) [Concomitant]
  16. CALCIUM CITRATE [Concomitant]

REACTIONS (7)
  - DIZZINESS [None]
  - PRODUCT QUALITY ISSUE [None]
  - FALL [None]
  - NON-CARDIAC CHEST PAIN [None]
  - TRAUMATIC LUNG INJURY [None]
  - CANDIDIASIS [None]
  - RIB FRACTURE [None]
